FAERS Safety Report 23387736 (Version 1)
Quarter: 2024Q1

REPORT INFORMATION
  Report Type: Spontaneous
  Country: US (occurrence: None)
  Receive Date: 20240109
  Receipt Date: 20240109
  Transmission Date: 20240410
  Serious: Yes (Other)
  Sender: FDA-Public Use
  Company Number: None

PATIENT
  Age: 83 Year
  Sex: Female
  Weight: 63 kg

DRUGS (6)
  1. LOSARTAN [Suspect]
     Active Substance: LOSARTAN
     Indication: Blood pressure measurement
     Dosage: FREQUENCY : DAILY;?
     Route: 048
  2. Alorvastin [Concomitant]
  3. THYROXINE [Concomitant]
     Active Substance: LEVOTHYROXINE
  4. Metoproloi [Concomitant]
  5. ELIQUIS [Concomitant]
     Active Substance: APIXABAN
  6. FLECAINIDE [Concomitant]
     Active Substance: FLECAINIDE

REACTIONS (4)
  - Rash [None]
  - Skin disorder [None]
  - Psoriasis [None]
  - Therapy change [None]

NARRATIVE: CASE EVENT DATE: 20221218
